FAERS Safety Report 19754540 (Version 1)
Quarter: 2021Q3

REPORT INFORMATION
  Report Type: Spontaneous
  Country: JP (occurrence: JP)
  Receive Date: 20210827
  Receipt Date: 20210827
  Transmission Date: 20211014
  Serious: Yes (Hospitalization, Other)
  Sender: FDA-Public Use
  Company Number: JP-GLAXOSMITHKLINE-JP2021JPN177822

PATIENT
  Age: 72 Year
  Sex: Female
  Weight: 65.3 kg

DRUGS (6)
  1. REBAMIPIDE [Concomitant]
     Active Substance: REBAMIPIDE
     Dosage: UNK
  2. TELMISARTAN. [Concomitant]
     Active Substance: TELMISARTAN
     Dosage: 80 MG
  3. VALTREX [Suspect]
     Active Substance: VALACYCLOVIR HYDROCHLORIDE
     Indication: HERPES VIRUS INFECTION
     Dosage: 3000 MG
  4. ROSUVASTATIN (ROSUVASTATIN CALCIUM) [Concomitant]
     Active Substance: ROSUVASTATIN CALCIUM
     Dosage: 5 MG
  5. LOXOPROFEN [Suspect]
     Active Substance: LOXOPROFEN
     Indication: HERPES VIRUS INFECTION
     Dosage: 60 MG
  6. AMLODIPINE BESILATE [Concomitant]
     Active Substance: AMLODIPINE BESYLATE
     Dosage: 5 MG

REACTIONS (8)
  - Muscular weakness [Recovering/Resolving]
  - Disorganised speech [Recovering/Resolving]
  - Toxic encephalopathy [Unknown]
  - Nervous system disorder [Unknown]
  - Renal impairment [Unknown]
  - Dyslalia [Recovering/Resolving]
  - Prescribed overdose [Unknown]
  - Urine output decreased [Unknown]
